FAERS Safety Report 16447522 (Version 2)
Quarter: 2020Q4

REPORT INFORMATION
  Report Type: Other
  Country: AU (occurrence: AU)
  Receive Date: 20190619
  Receipt Date: 20201026
  Transmission Date: 20210113
  Serious: Yes (Hospitalization)
  Sender: FDA-Public Use
  Company Number: AU-ROCHE-2338575

PATIENT
  Age: 19 Year
  Sex: Female

DRUGS (7)
  1. OMALIZUMAB. [Suspect]
     Active Substance: OMALIZUMAB
     Indication: CHRONIC SPONTANEOUS URTICARIA
     Route: 058
     Dates: start: 20180818
  2. RANITIDINE. [Concomitant]
     Active Substance: RANITIDINE
  3. OMALIZUMAB. [Suspect]
     Active Substance: OMALIZUMAB
     Indication: ANGIOEDEMA
     Route: 058
     Dates: start: 20180914
  4. OMALIZUMAB. [Suspect]
     Active Substance: OMALIZUMAB
     Route: 058
     Dates: start: 20190503
  5. PREDNISOLONE. [Concomitant]
     Active Substance: PREDNISOLONE
  6. FEXOFENADINE [Concomitant]
     Active Substance: FEXOFENADINE HYDROCHLORIDE
  7. OMALIZUMAB. [Suspect]
     Active Substance: OMALIZUMAB
     Route: 058
     Dates: start: 20190405, end: 20190405

REACTIONS (7)
  - Rash vesicular [Unknown]
  - Off label use [Unknown]
  - Intentional product use issue [Unknown]
  - Urticaria [Not Recovered/Not Resolved]
  - Concomitant disease aggravated [Recovered/Resolved]
  - Herpes zoster [Recovered/Resolved]
  - Angioedema [Not Recovered/Not Resolved]

NARRATIVE: CASE EVENT DATE: 20181017
